FAERS Safety Report 5672469-6 (Version None)
Quarter: 2008Q2

REPORT INFORMATION
  Report Type: 
  Country: None (occurrence: None)
  Receive Date: 20080219
  Receipt Date: 20080117
  Transmission Date: 20081010
  Serious: No
  Sender: FDA-Public Use
  Company Number: TPA2008A00084

PATIENT
  Age: 67 Year
  Sex: Female
  Weight: 65.7716 kg

DRUGS (5)
  1. ROZEREM [Suspect]
     Indication: INITIAL INSOMNIA
     Dosage: 8 MG, HS PRN, PER ORAL
     Route: 048
     Dates: start: 20080115, end: 20080117
  2. ROZEREM [Suspect]
     Indication: MIDDLE INSOMNIA
     Dosage: 8 MG, HS PRN, PER ORAL
     Route: 048
     Dates: start: 20080115, end: 20080117
  3. BENICAR [Concomitant]
  4. TRIAMTERENE AND HYDROCHLOROTHIAZIDE [Concomitant]
  5. LIPITOR [Concomitant]

REACTIONS (2)
  - DRUG INEFFECTIVE [None]
  - INITIAL INSOMNIA [None]
